FAERS Safety Report 16298612 (Version 1)
Quarter: 2019Q2

REPORT INFORMATION
  Report Type: Spontaneous
  Country: GB (occurrence: GB)
  Receive Date: 20190510
  Receipt Date: 20190510
  Transmission Date: 20190711
  Serious: Yes (Death, Hospitalization)
  Sender: FDA-Public Use
  Company Number: GB-SEATTLE GENETICS-2019SGN01512

PATIENT

DRUGS (1)
  1. ADCETRIS [Suspect]
     Active Substance: BRENTUXIMAB VEDOTIN
     Indication: CUTANEOUS T-CELL LYMPHOMA
     Dosage: 1.8 MILLIGRAM/KILOGRAM
     Route: 065

REACTIONS (15)
  - Psychotic disorder [Unknown]
  - Neuropathy peripheral [Unknown]
  - Conjunctivitis [Unknown]
  - Neutropenic sepsis [Unknown]
  - Fatigue [Unknown]
  - Oedema peripheral [Unknown]
  - Sepsis [Unknown]
  - Weight decreased [Unknown]
  - Cutaneous T-cell lymphoma [Fatal]
  - Tonsillitis [Unknown]
  - Pyrexia [Unknown]
  - Skin infection [Unknown]
  - Urinary tract infection [Unknown]
  - Rhinitis [Unknown]
  - Rash [Unknown]
